FAERS Safety Report 7067986 (Version 1)
Quarter: 2020Q3

REPORT INFORMATION
  Report Type: Spontaneous
  Country: None (occurrence: FR)
  Receive Date: 20090730
  Receipt Date: 20090730
  Transmission Date: 20201105
  Serious: Yes (Hospitalization, Other)
  Sender: FDA-Public Use
  Company Number: FR-ROXANE LABORATORIES, INC.-2009-RO-00752RO

PATIENT
  Age: 85 Year
  Sex: Male
  Weight: 80 kg

DRUGS (22)
  1. SUFENTANIL [Suspect]
     Active Substance: SUFENTANIL
     Indication: INDUCTION AND MAINTENANCE OF ANAESTHESIA
     Dosage: 20 MCG
  2. CISATRACURIUM. [Suspect]
     Active Substance: CISATRACURIUM
     Indication: INDUCTION AND MAINTENANCE OF ANAESTHESIA
     Dosage: 16 RT
  3. DIPYRIDAMOLE. [Suspect]
     Active Substance: DIPYRIDAMOLE
     Indication: ISCHAEMIC CARDIOMYOPATHY
  4. ATARAX [Suspect]
     Active Substance: HYDROXYZINE HYDROCHLORIDE
     Indication: PREMEDICATION
     Dosage: 100 MG
  5. OXYGEN. [Suspect]
     Active Substance: OXYGEN
     Route: 055
  6. FLECAINIDE [Suspect]
     Active Substance: FLECAINIDE
     Indication: ISCHAEMIC CARDIOMYOPATHY
  7. NALOXONE HYDROCHLORIDE. [Suspect]
     Active Substance: NALOXONE HYDROCHLORIDE
     Indication: OVERDOSE
  8. NITROGLYCERIN. [Concomitant]
     Active Substance: NITROGLYCERIN
     Indication: CARDIOMYOPATHY
  9. MORPHINE [Suspect]
     Active Substance: MORPHINE
     Indication: POSTOPERATIVE ANALGESIA
  10. OXYGEN. [Suspect]
     Active Substance: OXYGEN
     Route: 055
  11. MORPHINE [Suspect]
     Active Substance: MORPHINE
  12. INDAPAMIDE. [Suspect]
     Active Substance: INDAPAMIDE
     Indication: ISCHAEMIC CARDIOMYOPATHY
  13. MORPHINE [Suspect]
     Active Substance: MORPHINE
  14. ISOFLURANE. [Suspect]
     Active Substance: ISOFLURANE
     Indication: MAINTENANCE OF ANAESTHESIA
  15. TOPALGIC (FRANCE) [Suspect]
     Active Substance: TRAMADOL HYDROCHLORIDE
     Indication: POSTOPERATIVE ANALGESIA
  16. EPHEDRINE. [Suspect]
     Active Substance: EPHEDRINE
     Indication: HYPERTENSION
  17. ASPIRIN LYSINE [Concomitant]
     Active Substance: ASPIRIN LYSINE
     Indication: CARDIOMYOPATHY
  18. HYPNOMIDATE [ETOMIDATE] [Suspect]
     Active Substance: ETOMIDATE
     Indication: INDUCTION OF ANAESTHESIA
     Dosage: 30 MG
  19. PERFALGAN [Suspect]
     Active Substance: ACETAMINOPHEN
     Indication: POSTOPERATIVE ANALGESIA
  20. DROPERIDOL. [Suspect]
     Active Substance: DROPERIDOL
     Indication: ANALGESIC THERAPY
  21. TENORMIN [Concomitant]
     Active Substance: ATENOLOL
     Indication: CARDIOMYOPATHY
  22. LOVENOX [Concomitant]
     Active Substance: ENOXAPARIN SODIUM
     Indication: CARDIOMYOPATHY

REACTIONS (10)
  - Somnolence [Recovered/Resolved]
  - Acute respiratory distress syndrome [Unknown]
  - Overdose [Unknown]
  - Blood creatinine increased [Unknown]
  - Bradycardia [Unknown]
  - Hypertension [Unknown]
  - Troponin increased [Unknown]
  - Haemoglobinaemia [Unknown]
  - Myocardial ischaemia [Unknown]
  - Miosis [Unknown]
